FAERS Safety Report 17654169 (Version 1)
Quarter: 2020Q2

REPORT INFORMATION
  Report Type: Spontaneous
  Country: DE (occurrence: DE)
  Receive Date: 20200410
  Receipt Date: 20200410
  Transmission Date: 20200713
  Serious: Yes (Other)
  Sender: FDA-Public Use
  Company Number: DE-AMGEN-DEUSP2020058678

PATIENT

DRUGS (1)
  1. AIMOVIG [Suspect]
     Active Substance: ERENUMAB-AOOE
     Indication: PRODUCT USED FOR UNKNOWN INDICATION
     Dosage: UNK
     Route: 065
     Dates: start: 201908, end: 201912

REACTIONS (9)
  - Autoimmune thyroiditis [Unknown]
  - Tinnitus [Unknown]
  - Vomiting [Unknown]
  - Eye pruritus [Unknown]
  - Confusional state [Unknown]
  - Tremor [Unknown]
  - Weight decreased [Unknown]
  - Nausea [Unknown]
  - Malaise [Unknown]
